FAERS Safety Report 14507123 (Version 6)
Quarter: 2018Q2

REPORT INFORMATION
  Report Type: Report from Study
  Country: US (occurrence: US)
  Receive Date: 20180208
  Receipt Date: 20180627
  Transmission Date: 20180711
  Serious: Yes (Hospitalization)
  Sender: FDA-Public Use
  Company Number: US-EXELIXIS-CABO-18012250

PATIENT
  Age: 59 Year
  Sex: Male

DRUGS (20)
  1. TRAMADOL. [Concomitant]
     Active Substance: TRAMADOL
  2. VITAMIN C [Concomitant]
     Active Substance: ASCORBIC ACID
  3. LEVOTHYROXIN [Concomitant]
     Active Substance: LEVOTHYROXINE
  4. OMEPRAZOLE. [Concomitant]
     Active Substance: OMEPRAZOLE
  5. TOBRAMYCIN AND DEXAMETHASONE [Concomitant]
     Active Substance: DEXAMETHASONE\TOBRAMYCIN
  6. VITAMIN D3 [Concomitant]
     Active Substance: CHOLECALCIFEROL
  7. DEXAMETHASON [Concomitant]
     Active Substance: DEXAMETHASONE
  8. LISINOPRIL. [Concomitant]
     Active Substance: LISINOPRIL
  9. CEPHALEXIN. [Concomitant]
     Active Substance: CEPHALEXIN
  10. CEFADROXIL. [Concomitant]
     Active Substance: CEFADROXIL
  11. COQ 10 [Concomitant]
     Active Substance: UBIDECARENONE
  12. GABAPENTIN. [Concomitant]
     Active Substance: GABAPENTIN
  13. CABOMETYX [Suspect]
     Active Substance: CABOZANTINIB S-MALATE
     Dosage: 40 MG, QD
     Route: 048
  14. LEVETIRACETAM. [Concomitant]
     Active Substance: LEVETIRACETAM
  15. VITAMIN E [Concomitant]
     Active Substance: .ALPHA.-TOCOPHEROL
  16. HYDROCODONE BITARTRATE AND ACETAMINOPHEN [Concomitant]
     Active Substance: ACETAMINOPHEN\HYDROCODONE BITARTRATE
  17. CABOMETYX [Suspect]
     Active Substance: CABOZANTINIB S-MALATE
     Indication: RENAL CANCER
     Dosage: 60 MG, QD
     Route: 048
     Dates: start: 20180105
  18. CABOMETYX [Suspect]
     Active Substance: CABOZANTINIB S-MALATE
     Dosage: 40 MG, 3 WEEKS ON AND 1 WEEK OFF
  19. PREDNISOLONE. [Concomitant]
     Active Substance: PREDNISOLONE
  20. FISH OIL [Concomitant]
     Active Substance: FISH OIL
     Dosage: UNK

REACTIONS (7)
  - Diarrhoea [Recovered/Resolved]
  - Blister [Unknown]
  - Skin fissures [Unknown]
  - Hypertension [Unknown]
  - Chest pain [Unknown]
  - Palmar-plantar erythrodysaesthesia syndrome [Unknown]
  - Skin infection [Unknown]

NARRATIVE: CASE EVENT DATE: 20180126
